FAERS Safety Report 5953811-5 (Version None)
Quarter: 2008Q4

REPORT INFORMATION
  Report Type: 
  Country: None (occurrence: None)
  Receive Date: 20081114
  Receipt Date: 20081104
  Transmission Date: 20090506
  Serious: Yes (Other)
  Sender: FDA-Public Use
  Company Number: US-PFIZER INC-2008076455

PATIENT
  Sex: Male
  Weight: 99.8 kg

DRUGS (9)
  1. LYRICA [Suspect]
     Indication: BACK DISORDER
     Dates: start: 20080818, end: 20080908
  2. LYRICA [Suspect]
     Indication: PAIN
  3. NEURONTIN [Suspect]
  4. GABAPENTIN [Suspect]
     Indication: BACK PAIN
     Dates: start: 20080101
  5. SIMVASTATIN [Concomitant]
     Indication: BLOOD CHOLESTEROL INCREASED
  6. ACETAMINOPHEN [Concomitant]
     Indication: PAIN
  7. ACETAMINOPHEN [Concomitant]
     Indication: HEADACHE
  8. VITAMINS [Concomitant]
  9. CYMBALTA [Concomitant]
     Indication: PAIN

REACTIONS (3)
  - DENTAL OPERATION [None]
  - DRUG INEFFECTIVE [None]
  - VISION BLURRED [None]
